FAERS Safety Report 16911879 (Version 2)
Quarter: 2019Q4

REPORT INFORMATION
  Report Type: Report from Study
  Country: US (occurrence: US)
  Receive Date: 20191014
  Receipt Date: 20191104
  Transmission Date: 20200122
  Serious: No
  Sender: FDA-Public Use
  Company Number: US-SA-2019SA278406

PATIENT
  Age: 75 Year
  Sex: Female

DRUGS (2)
  1. DUPILUMAB [Suspect]
     Active Substance: DUPILUMAB
     Dosage: 300 MG, QOW
     Route: 058
  2. DUPILUMAB [Suspect]
     Active Substance: DUPILUMAB
     Indication: NASAL POLYPS
     Dosage: 2 DF, 1X
     Route: 058
     Dates: start: 20190911, end: 20190911

REACTIONS (2)
  - Hyposmia [Unknown]
  - Hypogeusia [Unknown]

NARRATIVE: CASE EVENT DATE: 201909
